FAERS Safety Report 5572849-3 (Version None)
Quarter: 2007Q4

REPORT INFORMATION
  Report Type: 
  Country: None (occurrence: None)
  Receive Date: 20071223
  Receipt Date: 20071219
  Transmission Date: 20080405
  Serious: Yes (Other)
  Sender: FDA-Public Use
  Company Number: PHBS2007CH21188

PATIENT
  Age: 84 Year
  Sex: Female

DRUGS (2)
  1. AREDIA [Suspect]
     Indication: SPINAL FRACTURE
     Dates: start: 19920101, end: 20070501
  2. FOSAMAX [Suspect]
     Route: 048
     Dates: end: 20070501

REACTIONS (3)
  - OSTEONECROSIS [None]
  - SPINAL FRACTURE [None]
  - TOOTH EXTRACTION [None]
